FAERS Safety Report 21099602 (Version 2)
Quarter: 2022Q3

REPORT INFORMATION
  Report Type: Spontaneous
  Country: NL (occurrence: NL)
  Receive Date: 20220719
  Receipt Date: 20220728
  Transmission Date: 20221027
  Serious: Yes (Other)
  Sender: FDA-Public Use
  Company Number: NL-LRB-00298167

PATIENT
  Age: 46 Year
  Sex: Male
  Weight: 75 kg

DRUGS (7)
  1. TRIAMCINOLONE ACETONIDE [Suspect]
     Active Substance: TRIAMCINOLONE ACETONIDE
     Indication: Ear infection
     Dosage: THRICE A DAY 3 DROPS
     Route: 001
     Dates: start: 201206, end: 201808
  2. DEXAMETHASONE [Suspect]
     Active Substance: DEXAMETHASONE
     Indication: Ear infection
     Dosage: THRICE A DAY 3 DROPS
     Route: 001
     Dates: start: 201808, end: 201808
  3. HYDROCORTISONE [Suspect]
     Active Substance: HYDROCORTISONE
     Indication: Ear infection
     Dosage: THRICE A DAY 3 DROPS
     Route: 001
     Dates: start: 201808, end: 201808
  4. FRAMYCETIN [Suspect]
     Active Substance: FRAMYCETIN
     Indication: Ear infection
     Dosage: THRICE A DAY 3 DROPS
     Route: 001
     Dates: start: 201808, end: 201808
  5. GRAMICIDIN [Suspect]
     Active Substance: GRAMICIDIN
     Indication: Ear infection
     Dosage: THRICE A DAY 3 DROPS
     Route: 001
     Dates: start: 201808, end: 201808
  6. HYDROCORTISONE [Concomitant]
     Active Substance: HYDROCORTISONE
     Indication: Skin disorder
     Dosage: TWICE A DAY
     Route: 065
     Dates: start: 2018, end: 2018
  7. MICONAZOLE NITRATE [Concomitant]
     Active Substance: MICONAZOLE NITRATE
     Indication: Product used for unknown indication
     Route: 065
     Dates: start: 2018

REACTIONS (1)
  - Central serous chorioretinopathy [Not Recovered/Not Resolved]

NARRATIVE: CASE EVENT DATE: 20180827
